FAERS Safety Report 13921561 (Version 1)
Quarter: 2017Q3

REPORT INFORMATION
  Report Type: Spontaneous
  Country: US (occurrence: None)
  Receive Date: 20170830
  Receipt Date: 20170830
  Transmission Date: 20171127
  Serious: No
  Sender: FDA-Public Use
  Company Number: None

PATIENT
  Age: 67 Year
  Sex: Female
  Weight: 66.23 kg

DRUGS (9)
  1. PROBIOTIC [Concomitant]
     Active Substance: PROBIOTICS NOS
  2. FISH OIL [Concomitant]
     Active Substance: FISH OIL
  3. LOSARTAN/HCTZ [Concomitant]
     Active Substance: HYDROCHLOROTHIAZIDE\LOSARTAN
  4. VITAMIN D3 [Concomitant]
     Active Substance: CHOLECALCIFEROL
  5. VITAMINS NOS [Concomitant]
     Active Substance: VITAMINS
  6. CIPROFLOXACIN. [Suspect]
     Active Substance: CIPROFLOXACIN
     Indication: DIVERTICULITIS
     Dosage: 20 PILLS TWICE DAILY BY MOUTH
     Route: 048
     Dates: start: 20170703, end: 20170712
  7. OMEPRAZOLE. [Concomitant]
     Active Substance: OMEPRAZOLE
  8. SIMVASTATIN. [Concomitant]
     Active Substance: SIMVASTATIN
  9. PROPRANOLOL [Concomitant]
     Active Substance: PROPRANOLOL HYDROCHLORIDE

REACTIONS (5)
  - Muscle twitching [None]
  - Anxiety [None]
  - Pruritus [None]
  - Insomnia [None]
  - Restlessness [None]

NARRATIVE: CASE EVENT DATE: 20170715
